FAERS Safety Report 21734150 (Version 1)
Quarter: 2022Q4

REPORT INFORMATION
  Report Type: Spontaneous
  Country: NL (occurrence: NL)
  Receive Date: 20221215
  Receipt Date: 20221215
  Transmission Date: 20230113
  Serious: Yes (Other)
  Sender: FDA-Public Use
  Company Number: None

PATIENT
  Sex: Female
  Weight: 65 kg

DRUGS (2)
  1. AMLODIPINE [Interacting]
     Active Substance: AMLODIPINE BESYLATE
     Indication: Vasospasm
     Dosage: UNK
     Route: 065
  2. PFIZER-BIONTECH COVID-19 VACCINE [Interacting]
     Active Substance: TOZINAMERAN
     Indication: COVID-19 immunisation
     Dosage: 1 DOSAGE FORM
     Route: 065
     Dates: start: 20221024

REACTIONS (12)
  - Prinzmetal angina [Recovering/Resolving]
  - Raynaud^s phenomenon [Recovering/Resolving]
  - Vasospasm [Recovering/Resolving]
  - Balance disorder [Recovering/Resolving]
  - Condition aggravated [Recovering/Resolving]
  - Cognitive disorder [Recovering/Resolving]
  - Malaise [Recovered/Resolved]
  - Nausea [Recovering/Resolving]
  - Arthralgia [Recovered/Resolved]
  - Fatigue [Recovering/Resolving]
  - Myalgia [Recovering/Resolving]
  - Drug interaction [Unknown]
